FAERS Safety Report 17388065 (Version 1)
Quarter: 2020Q1

REPORT INFORMATION
  Report Type: Spontaneous
  Country: US (occurrence: US)
  Receive Date: 20200203
  Receipt Date: 20200203
  Transmission Date: 20200409
  Serious: Yes (Hospitalization)
  Sender: FDA-Public Use
  Company Number: None

PATIENT
  Age: 71 Year
  Sex: Male

DRUGS (1)
  1. HEPARIN (HEPARIN CA 5000 UNT/0.2ML INJ, AMP W/SYRINGE, 0.2ML) [Suspect]
     Active Substance: HEPARIN CALCIUM
     Route: 058
     Dates: start: 20191010, end: 20191014

REACTIONS (1)
  - Thrombocytopenia [None]

NARRATIVE: CASE EVENT DATE: 20191023
